FAERS Safety Report 25648941 (Version 2)
Quarter: 2025Q3

REPORT INFORMATION
  Report Type: Report from Study
  Country: US (occurrence: US)
  Receive Date: 20250806
  Receipt Date: 20250911
  Transmission Date: 20251020
  Serious: Yes (Other)
  Sender: RECORDATI
  Company Number: US-ORPHANEU-2025005483

PATIENT
  Age: 60 Year
  Sex: Male
  Weight: 143.76 kg

DRUGS (27)
  1. ISTURISA [Suspect]
     Active Substance: OSILODROSTAT PHOSPHATE
     Indication: Cushing^s syndrome
     Dosage: 1 MG, QD (AT BEDTIME)
     Route: 048
  2. ISTURISA [Suspect]
     Active Substance: OSILODROSTAT PHOSPHATE
     Dosage: 1 MG, QD (AT BEDTIME)
     Route: 048
     Dates: end: 2025
  3. ALBUTEROL SULFATE [Concomitant]
     Active Substance: ALBUTEROL SULFATE
     Indication: Product used for unknown indication
     Dates: start: 20240630
  4. ALLOPURINOL [Concomitant]
     Active Substance: ALLOPURINOL
     Indication: Product used for unknown indication
     Dosage: 100 MG, QD (100 MG TABLET)
     Route: 048
     Dates: start: 20240630
  5. BENZTROPINE MESYLATE [Concomitant]
     Active Substance: BENZTROPINE MESYLATE
     Indication: Product used for unknown indication
     Dosage: 2 MG, BID (TABLET)
     Route: 048
     Dates: start: 20240630
  6. FAMCICLOVIR [Concomitant]
     Active Substance: FAMCICLOVIR
     Indication: Product used for unknown indication
     Dosage: 500 MG, QD (500 MG TABLET)
     Route: 048
     Dates: start: 20240630
  7. FENOFIBRATE [Concomitant]
     Active Substance: FENOFIBRATE
     Indication: Product used for unknown indication
     Dosage: 54 MG, QD (54 MG TABLET)
     Route: 048
     Dates: start: 20240630
  8. GLIMEPIRIDE [Concomitant]
     Active Substance: GLIMEPIRIDE
     Indication: Product used for unknown indication
     Dosage: 4 MG, BID (4 MG, TABLET)
     Route: 048
     Dates: start: 20240630
  9. HUMALOG MIX75/25 [Concomitant]
     Active Substance: INSULIN LISPRO
     Indication: Product used for unknown indication
     Route: 058
     Dates: start: 20240630
  10. ACETAMINOPHEN\HYDROCODONE [Concomitant]
     Active Substance: ACETAMINOPHEN\HYDROCODONE
     Indication: Product used for unknown indication
     Route: 048
     Dates: start: 20240630
  11. LASIX [Concomitant]
     Active Substance: FUROSEMIDE
     Indication: Product used for unknown indication
     Dosage: 80 MG, QD (80 MG, TABLET)
     Route: 048
     Dates: start: 20240630
  12. METFORMIN HYDROCHLORIDE [Concomitant]
     Active Substance: METFORMIN HYDROCHLORIDE
     Indication: Product used for unknown indication
     Dosage: 500 MG, BID (OSM) (TABLET)
     Route: 048
     Dates: start: 20250630
  13. METHENAMINE HIPPURATE [Concomitant]
     Active Substance: METHENAMINE HIPPURATE
     Indication: Product used for unknown indication
     Dosage: 1 GRAM, BID (TABLET)
     Route: 048
     Dates: start: 20240630
  14. METOCLOPRAMIDE HYDROCHLORIDE [Concomitant]
     Active Substance: METOCLOPRAMIDE HYDROCHLORIDE
     Indication: Product used for unknown indication
     Dosage: 10 MG, BID (TABLET)
     Route: 048
     Dates: start: 20250630
  15. METOPROLOL TARTRATE [Concomitant]
     Active Substance: METOPROLOL TARTRATE
     Indication: Product used for unknown indication
     Dosage: 50 MG, TID (TABLET) AFTER MEALS
     Route: 048
     Dates: start: 20250630
  16. MIRALAX [Concomitant]
     Active Substance: POLYETHYLENE GLYCOL 3350
     Indication: Product used for unknown indication
     Route: 048
     Dates: start: 20240630
  17. MOUNJARO [Concomitant]
     Active Substance: TIRZEPATIDE
     Indication: Product used for unknown indication
     Route: 058
     Dates: start: 20240630
  18. OMEPRAZOLE MAGNESIUM [Concomitant]
     Active Substance: OMEPRAZOLE MAGNESIUM
     Indication: Product used for unknown indication
     Dosage: 20 MG, BID (DELAYED TABLET)
     Route: 048
     Dates: start: 20250630
  19. OXYBUTYNIN CHLORIDE [Concomitant]
     Active Substance: OXYBUTYNIN CHLORIDE
     Indication: Product used for unknown indication
     Route: 048
     Dates: start: 20250630
  20. PRAMIPEXOLE DIHYDROCHLORIDE [Concomitant]
     Active Substance: PRAMIPEXOLE DIHYDROCHLORIDE
     Indication: Product used for unknown indication
     Route: 048
     Dates: start: 20240630
  21. PROCHLORPERAZINE MALEATE [Concomitant]
     Active Substance: PROCHLORPERAZINE MALEATE
     Indication: Product used for unknown indication
     Dosage: 10 MG, TID, PRN (TABLET)
     Route: 048
     Dates: start: 20250630
  22. QUETIAPINE FUMARATE [Concomitant]
     Active Substance: QUETIAPINE FUMARATE
     Indication: Product used for unknown indication
     Dosage: 200 MILLIGRAM, QD (TABLET)
     Route: 048
     Dates: start: 20250630
  23. ROSUVASTATIN CALCIUM [Concomitant]
     Active Substance: ROSUVASTATIN CALCIUM
     Indication: Product used for unknown indication
     Dosage: 20 MILLIGRAM, QD (TABLET)
     Route: 048
     Dates: start: 20250630
  24. SPIRONOLACTONE [Concomitant]
     Active Substance: SPIRONOLACTONE
     Indication: Product used for unknown indication
     Dosage: 25 MG, BID (25 MG TABLET)
     Route: 048
     Dates: start: 20250630
  25. VALSARTAN [Concomitant]
     Active Substance: VALSARTAN
     Indication: Product used for unknown indication
     Dosage: 160 MG, QD (TABLET 160 MG)
     Route: 048
     Dates: start: 20250630
  26. VITAMIN B6 [Concomitant]
     Active Substance: PYRIDOXINE HYDROCHLORIDE
     Indication: Product used for unknown indication
     Dosage: 100 MG, QD (100 MG TABLET)
     Route: 048
     Dates: start: 20250630
  27. VITAMIN D3 [Concomitant]
     Active Substance: CHOLECALCIFEROL
     Indication: Product used for unknown indication
     Dosage: 125 MICROGRAM, QD (125 MICROGRAM TABLET (500))
     Route: 048
     Dates: start: 20240630

REACTIONS (4)
  - Renal failure [Not Recovered/Not Resolved]
  - Lip swelling [Not Recovered/Not Resolved]
  - Dizziness [Not Recovered/Not Resolved]
  - Off label use [Recovered/Resolved]

NARRATIVE: CASE EVENT DATE: 20250701
